FAERS Safety Report 7643597-0 (Version None)
Quarter: 2011Q3

REPORT INFORMATION
  Report Type: 
  Country: None (occurrence: None)
  Receive Date: 20110729
  Receipt Date: 20110721
  Transmission Date: 20111222
  Serious: Yes (Hospitalization, Other)
  Sender: FDA-Public Use
  Company Number: US-BAYER-2010-007047

PATIENT
  Age: 36 Year
  Sex: Female
  Weight: 113.38 kg

DRUGS (5)
  1. DROSPIRENONE AND ETHINYL ESTRADIOL [Suspect]
     Dosage: UNK
     Dates: start: 20040101, end: 20091101
  2. AUGMENTIN '125' [Concomitant]
     Indication: SINUSITIS
     Dosage: UNK UNK, BID
  3. YASMIN [Suspect]
     Dosage: UNK
     Dates: start: 20040101, end: 20091101
  4. ATIVAN [Concomitant]
     Indication: SOMNAMBULISM
     Dosage: UNK UNK, QD
  5. FIORICET [Concomitant]
     Indication: MIGRAINE
     Dosage: UNK UNK, PRN

REACTIONS (4)
  - CHOLECYSTITIS CHRONIC [None]
  - INJURY [None]
  - PAIN [None]
  - GALLBLADDER DISORDER [None]
